FAERS Safety Report 4520603-3 (Version None)
Quarter: 2004Q4

REPORT INFORMATION
  Report Type: 
  Country: None (occurrence: None)
  Receive Date: 20041203
  Receipt Date: 20041119
  Transmission Date: 20050328
  Serious: Yes (Disabling, Other)
  Sender: FDA-Public Use
  Company Number: A-US2004-07982

PATIENT
  Age: 34 Year
  Sex: Male

DRUGS (15)
  1. TRACLEER [Suspect]
     Indication: PULMONARY HYPERTENSION
     Dosage: 62.5 MG , BID, ORAL
     Route: 048
     Dates: start: 20040801, end: 20041027
  2. ATAZANAVIR [Concomitant]
  3. ZERIT [Concomitant]
  4. DIFLUCAN (LFUCONAZOLE) [Concomitant]
  5. ZIAGEN [Concomitant]
  6. BACTRIM [Concomitant]
  7. ZOLOFT [Concomitant]
  8. ELAVIL [Concomitant]
  9. RISPERDAL [Concomitant]
  10. ESKALITH [Concomitant]
  11. PROPRANOLOL [Concomitant]
  12. KLONOPIN [Concomitant]
  13. PROTONIX [Concomitant]
  14. COUMADIN (WARFARIN SODIM) [Concomitant]
  15. CONCERTA [Concomitant]

REACTIONS (9)
  - ANGIONEUROTIC OEDEMA [None]
  - CANDIDIASIS [None]
  - DYSPHONIA [None]
  - JOINT SWELLING [None]
  - LARYNGEAL PAIN [None]
  - LIMB INJURY [None]
  - LIVER FUNCTION TEST ABNORMAL [None]
  - OEDEMA PERIPHERAL [None]
  - SINUSITIS [None]
